FAERS Safety Report 12474655 (Version 1)
Quarter: 2016Q2

REPORT INFORMATION
  Report Type: Spontaneous
  Country: US (occurrence: None)
  Receive Date: 20160616
  Receipt Date: 20160616
  Transmission Date: 20160815
  Serious: Yes (Life-Threatening, Hospitalization, Other)
  Sender: FDA-Public Use
  Company Number: None

PATIENT
  Age: 48 Year
  Sex: Female
  Weight: 72.58 kg

DRUGS (3)
  1. LYRICA [Suspect]
     Active Substance: PREGABALIN
     Indication: HYPERPYREXIA
     Route: 048
  2. LYRICA [Suspect]
     Active Substance: PREGABALIN
     Indication: PAIN
     Route: 048
  3. LYRICA [Suspect]
     Active Substance: PREGABALIN
     Indication: FLUSHING
     Route: 048

REACTIONS (4)
  - Intentional overdose [None]
  - Toxicity to various agents [None]
  - Acute respiratory distress syndrome [None]
  - Suicide attempt [None]

NARRATIVE: CASE EVENT DATE: 20160323
